FAERS Safety Report 17207874 (Version 1)
Quarter: 2019Q4

REPORT INFORMATION
  Report Type: Spontaneous
  Country: US (occurrence: US)
  Receive Date: 20191227
  Receipt Date: 20191227
  Transmission Date: 20200122
  Serious: No
  Sender: FDA-Public Use
  Company Number: US-JNJFOC-20191239171

PATIENT
  Sex: Female
  Weight: 100.2 kg

DRUGS (19)
  1. RUBRACA [Suspect]
     Active Substance: RUCAPARIB CAMSYLATE
     Indication: OVARIAN CANCER
     Route: 048
     Dates: start: 20180725
  2. EPINEPHRINE HCL [Concomitant]
     Active Substance: EPINEPHRINE
  3. RUBRACA [Suspect]
     Active Substance: RUCAPARIB CAMSYLATE
     Route: 048
     Dates: start: 20180804
  4. METFORMIN [Concomitant]
     Active Substance: METFORMIN HYDROCHLORIDE
  5. RUBRACA [Suspect]
     Active Substance: RUCAPARIB CAMSYLATE
     Route: 048
     Dates: start: 20180911
  6. FIORICET [Concomitant]
     Active Substance: ACETAMINOPHEN\BUTALBITAL\CAFFEINE
  7. HYDRODIURIL [Concomitant]
     Active Substance: HYDROCHLOROTHIAZIDE
  8. EXEMESTANE. [Concomitant]
     Active Substance: EXEMESTANE
  9. NORVASC [Concomitant]
     Active Substance: AMLODIPINE BESYLATE
  10. FLEXERIL [Concomitant]
     Active Substance: CYCLOBENZAPRINE HYDROCHLORIDE
  11. TOPAMAX [Suspect]
     Active Substance: TOPIRAMATE
     Indication: MIGRAINE
     Route: 048
  12. VITAMIN D2 [Concomitant]
     Active Substance: ERGOCALCIFEROL
  13. XANAX [Concomitant]
     Active Substance: ALPRAZOLAM
  14. FOLVITE [Concomitant]
     Active Substance: FOLIC ACID
  15. FEMARA [Concomitant]
     Active Substance: LETROZOLE
  16. TRULICITY [Concomitant]
     Active Substance: DULAGLUTIDE
  17. NEURONTIN [Concomitant]
     Active Substance: GABAPENTIN
  18. ZOFRAN [Concomitant]
     Active Substance: ONDANSETRON HYDROCHLORIDE
  19. ULTRAM [Concomitant]
     Active Substance: TRAMADOL HYDROCHLORIDE

REACTIONS (1)
  - Feeling abnormal [Unknown]
